FAERS Safety Report 16250878 (Version 2)
Quarter: 2019Q2

REPORT INFORMATION
  Report Type: Spontaneous
  Country: JP (occurrence: JP)
  Receive Date: 20190429
  Receipt Date: 20190618
  Transmission Date: 20190711
  Serious: Yes (Hospitalization, Other)
  Sender: FDA-Public Use
  Company Number: JP-PFIZER INC-2019171305

PATIENT
  Age: 65 Year
  Sex: Male
  Weight: 43 kg

DRUGS (5)
  1. BENEFIX [Suspect]
     Active Substance: COAGULATION FACTOR IX RECOMBINANT HUMAN\ISOPROPYL ALCOHOL
     Indication: HAEMORRHAGE PROPHYLAXIS
     Dosage: 2000 IU, 1X/DAY
     Route: 042
     Dates: start: 20131201
  2. DOLUTEGRAVIR [Concomitant]
     Active Substance: DOLUTEGRAVIR
     Indication: HIV INFECTION
     Dosage: 50 MG, 2X/DAY
     Route: 048
     Dates: start: 20140613
  3. DARUNAVIR [Concomitant]
     Active Substance: DARUNAVIR
     Indication: HIV INFECTION
     Dosage: 600 MG, 2X/DAY
     Route: 048
     Dates: start: 20140613
  4. RITONAVIR. [Concomitant]
     Active Substance: RITONAVIR
     Indication: HIV INFECTION
     Dosage: 100 MG, 2X/DAY
     Route: 048
     Dates: start: 20140613
  5. ENTECAVIR. [Concomitant]
     Active Substance: ENTECAVIR
     Indication: HIV INFECTION
     Dosage: 200 MG, 2X/DAY
     Route: 048
     Dates: start: 20140613

REACTIONS (2)
  - Cataract [Recovered/Resolved]
  - Cataract [Recovered/Resolved]

NARRATIVE: CASE EVENT DATE: 20170104
